FAERS Safety Report 7650237-3 (Version None)
Quarter: 2011Q3

REPORT INFORMATION
  Report Type: 
  Country: None (occurrence: None)
  Receive Date: 20110727
  Receipt Date: 20110719
  Transmission Date: 20111222
  Serious: Yes (Other)
  Sender: FDA-Public Use
  Company Number: ACO_25350_2011

PATIENT
  Age: 62 Year
  Sex: Male
  Weight: 81.6 kg

DRUGS (6)
  1. BACLOFEN [Concomitant]
  2. FLONASE [Concomitant]
  3. AMPYRA [Suspect]
     Indication: GAIT DISTURBANCE
     Dosage: 10 MG, Q 12 HRS. ORAL
     Route: 048
  4. AMPYRA [Suspect]
     Indication: MULTIPLE SCLEROSIS
     Dosage: 10 MG, Q 12 HRS. ORAL
     Route: 048
  5. NALTREXONE HYDROCHLORIDE [Concomitant]
  6. TERAZOSIN HCL [Concomitant]

REACTIONS (1)
  - APHASIA [None]
